FAERS Safety Report 5099002-4 (Version None)
Quarter: 2006Q3

REPORT INFORMATION
  Report Type: 
  Country: None (occurrence: None)
  Receive Date: 20060731
  Receipt Date: 20050802
  Transmission Date: 20061208
  Serious: Yes (Other)
  Sender: FDA-Public Use
  Company Number: US-2005-015570

PATIENT
  Age: 56 Year
  Sex: Female
  Weight: 99.8 kg

DRUGS (1)
  1. MAGNEVIST [Suspect]
     Indication: ANGIOGRAM
     Dosage: 20 ML, 1 DOSE, INTRAVENOUS
     Route: 042
     Dates: start: 20050714, end: 20050714

REACTIONS (4)
  - ABDOMINAL PAIN [None]
  - BLOOD PRESSURE ORTHOSTATIC ABNORMAL [None]
  - DIZZINESS [None]
  - HYPERHIDROSIS [None]
